FAERS Safety Report 8350186-1 (Version None)
Quarter: 2012Q2

REPORT INFORMATION
  Report Type: 
  Country: None (occurrence: None)
  Receive Date: 20120510
  Receipt Date: 20120507
  Transmission Date: 20120825
  Serious: Yes (Life-Threatening, Hospitalization, Other)
  Sender: FDA-Public Use
  Company Number: JP-PFIZER INC-2012112211

PATIENT
  Age: 71 Year
  Sex: Male

DRUGS (13)
  1. CYCLOPHOSPHAMIDE [Suspect]
     Indication: ACUTE LYMPHOCYTIC LEUKAEMIA
     Dosage: UNK
  2. SPRYCEL [Suspect]
     Indication: ACUTE LYMPHOCYTIC LEUKAEMIA
     Dosage: 70 MG, 2X/DAY
     Route: 048
     Dates: start: 20120222
  3. CANDESARTAN CILEXETIL [Concomitant]
     Dosage: UNK
     Dates: end: 20120221
  4. DEXAMETHASONE SODIUM PHOSPHATE [Concomitant]
     Dosage: 8 MG, 1X/DAY
     Dates: start: 20120222, end: 20120226
  5. NEUPOGEN [Suspect]
     Indication: ACUTE LYMPHOCYTIC LEUKAEMIA
  6. ONCOVIN [Suspect]
     Indication: ACUTE LYMPHOCYTIC LEUKAEMIA
     Route: 042
  7. FLUCONAZOLE [Concomitant]
     Dosage: UNK
     Dates: start: 20120208, end: 20120329
  8. IDARUBICIN HCL [Suspect]
     Indication: ACUTE LYMPHOCYTIC LEUKAEMIA
     Dosage: UNK
     Dates: start: 20120208, end: 20120215
  9. CYTARABINE [Suspect]
     Indication: ACUTE LYMPHOCYTIC LEUKAEMIA
     Dosage: UNK
     Dates: start: 20120208, end: 20120215
  10. ALLOPURINOL [Concomitant]
     Dosage: UNK
     Dates: start: 20120208, end: 20120329
  11. POLYMYXIN B SULFATE [Concomitant]
     Dosage: UNK
     Dates: start: 20120208, end: 20120329
  12. COTRIM [Concomitant]
     Dosage: UNK
     Dates: start: 20120208, end: 20120329
  13. NEUTROGIN [Concomitant]
     Dosage: UNK
     Dates: start: 20120227, end: 20120304

REACTIONS (5)
  - PLATELET COUNT DECREASED [None]
  - ANAEMIA [None]
  - INTERSTITIAL LUNG DISEASE [None]
  - PLEURAL EFFUSION [None]
  - WHITE BLOOD CELL COUNT DECREASED [None]
